FAERS Safety Report 6238584-3 (Version None)
Quarter: 2009Q2

REPORT INFORMATION
  Report Type: 
  Country: None (occurrence: None)
  Receive Date: 20090622
  Receipt Date: 20090610
  Transmission Date: 20091009
  Serious: Yes (Death, Hospitalization)
  Sender: FDA-Public Use
  Company Number: BR-NOVOPROD-287885

PATIENT
  Sex: Female
  Weight: 2.93 kg

DRUGS (4)
  1. INSULIN DETEMIR PENFILL [Suspect]
     Indication: TYPE 1 DIABETES MELLITUS
     Dosage: 60 IU, UNK
     Route: 064
     Dates: start: 20080923
  2. NOVORAPID PENFILL 3.0 ML [Suspect]
     Indication: TYPE 1 DIABETES MELLITUS
     Dosage: 46 IU, QD
     Route: 064
     Dates: start: 20080923
  3. FOLIC ACID [Concomitant]
     Route: 064
     Dates: start: 20080908
  4. MATERNA                            /01700601/ [Concomitant]
     Route: 064

REACTIONS (1)
  - INTRA-UTERINE DEATH [None]
